FAERS Safety Report 18239240 (Version 3)
Quarter: 2021Q1

REPORT INFORMATION
  Report Type: Spontaneous
  Country: US (occurrence: US)
  Receive Date: 20200907
  Receipt Date: 20210310
  Transmission Date: 20210419
  Serious: No
  Sender: FDA-Public Use
  Company Number: NVSC2020US244041

PATIENT
  Sex: Female

DRUGS (1)
  1. MEKINIST [Suspect]
     Active Substance: TRAMETINIB DIMETHYL SULFOXIDE
     Indication: BRAIN NEOPLASM
     Dosage: 1.5 MG, QD
     Route: 048
     Dates: start: 20200813

REACTIONS (5)
  - Rash [Unknown]
  - Acne [Unknown]
  - Alopecia [Unknown]
  - Skin disorder [Recovered/Resolved]
  - Product use in unapproved indication [Unknown]
